FAERS Safety Report 6243373-X (Version None)
Quarter: 2009Q2

REPORT INFORMATION
  Report Type: 
  Country: None (occurrence: None)
  Receive Date: 20090624
  Receipt Date: 20090617
  Transmission Date: 20091009
  Serious: Yes (Hospitalization)
  Sender: FDA-Public Use
  Company Number: IE-WYE-G03747309

PATIENT
  Sex: Male
  Weight: 127 kg

DRUGS (1)
  1. EFFEXOR XR [Suspect]
     Indication: DEPRESSION
     Dosage: 75 MG EVERY 1 TOT
     Route: 048
     Dates: start: 20090512, end: 20090512

REACTIONS (6)
  - DYSPHAGIA [None]
  - DYSPNOEA [None]
  - HYPERAEMIA [None]
  - OESOPHAGEAL DISCOMFORT [None]
  - PALATAL OEDEMA [None]
  - PHARYNGEAL OEDEMA [None]
